FAERS Safety Report 9360048 (Version 1)
Quarter: 2013Q2

REPORT INFORMATION
  Report Type: Spontaneous
  Country: US (occurrence: US)
  Receive Date: 20130621
  Receipt Date: 20130621
  Transmission Date: 20140414
  Serious: No
  Sender: FDA-Public Use
  Company Number: US-PFIZER INC-2013185932

PATIENT
  Sex: Male

DRUGS (1)
  1. LYRICA [Suspect]
     Indication: POST HERPETIC NEURALGIA
     Dosage: 150 MG, 3X/DAY
     Dates: start: 20130613

REACTIONS (3)
  - Drug ineffective [Unknown]
  - Musculoskeletal pain [Unknown]
  - Pain [Unknown]
